FAERS Safety Report 4804714-0 (Version None)
Quarter: 2005Q4

REPORT INFORMATION
  Report Type: 
  Country: None (occurrence: None)
  Receive Date: 20051020
  Receipt Date: 20030210
  Transmission Date: 20060501
  Serious: Yes (Death)
  Sender: FDA-Public Use
  Company Number: 200310619FR

PATIENT
  Age: 66 Year
  Sex: Female

DRUGS (3)
  1. TAXOTERE [Suspect]
     Indication: BREAST CANCER
     Route: 042
     Dates: start: 20021204, end: 20021204
  2. ZOMETA [Concomitant]
     Route: 042
     Dates: start: 20021204
  3. SOLU-MEDROL [Concomitant]
     Route: 042
     Dates: start: 20021204

REACTIONS (10)
  - ACUTE PULMONARY OEDEMA [None]
  - BLOOD PRESSURE INCREASED [None]
  - CHEST DISCOMFORT [None]
  - CYANOSIS [None]
  - DYSPNOEA [None]
  - HAEMOPTYSIS [None]
  - NEUROLOGIC NEGLECT SYNDROME [None]
  - PULMONARY OEDEMA [None]
  - QUADRIPLEGIA [None]
  - VISUAL DISTURBANCE [None]
